FAERS Safety Report 7680701-2 (Version None)
Quarter: 2011Q3

REPORT INFORMATION
  Report Type: 
  Country: None (occurrence: None)
  Receive Date: 20110812
  Receipt Date: 20110802
  Transmission Date: 20111222
  Serious: Yes (Hospitalization)
  Sender: FDA-Public Use
  Company Number: DE-JNJFOC-20110802797

PATIENT
  Age: 15 Year
  Sex: Male

DRUGS (2)
  1. INFLIXIMAB, RECOMBINANT [Suspect]
     Dosage: 6 INFUSIONS
     Route: 042
     Dates: start: 20001001, end: 20020301
  2. INFLIXIMAB, RECOMBINANT [Suspect]
     Indication: CROHN'S DISEASE
     Dosage: 7TH INFUSION
     Route: 042
     Dates: start: 20020101, end: 20020101

REACTIONS (4)
  - NAUSEA [None]
  - VOMITING [None]
  - DYSPNOEA [None]
  - EUPHORIC MOOD [None]
